FAERS Safety Report 8076372-6 (Version None)
Quarter: 2012Q1

REPORT INFORMATION
  Report Type: 
  Country: None (occurrence: None)
  Receive Date: 20120127
  Receipt Date: 20120127
  Transmission Date: 20120608
  Serious: No
  Sender: FDA-Public Use
  Company Number: None

PATIENT
  Age: 29 Year
  Sex: Female
  Weight: 47.627 kg

DRUGS (1)
  1. KENALOG [Suspect]
     Indication: COSTOCHONDRITIS
     Dosage: 1 SHOT IN BUTTOCK
     Dates: start: 20111109, end: 20111109

REACTIONS (2)
  - INJECTION SITE REACTION [None]
  - INJECTION SITE HAEMATOMA [None]
